FAERS Safety Report 14367401 (Version 1)
Quarter: 2018Q1

REPORT INFORMATION
  Report Type: Spontaneous
  Country: US (occurrence: US)
  Receive Date: 20180109
  Receipt Date: 20180109
  Transmission Date: 20180509
  Serious: No
  Sender: FDA-Public Use
  Company Number: US-TARO-2017TAR00897

PATIENT
  Sex: Female
  Weight: 79.37 kg

DRUGS (4)
  1. ESTRING [Concomitant]
     Active Substance: ESTRADIOL
  2. METRONIDAZOLE GEL USP, 1% [Suspect]
     Active Substance: METRONIDAZOLE
     Indication: ROSACEA
     Dosage: UNK, 1X/DAY BEFORE BEDTIME
     Route: 061
     Dates: end: 2017
  3. METRONIDAZOLE GEL USP, 1% [Suspect]
     Active Substance: METRONIDAZOLE
     Dosage: UNK, 1X/DAY BEFORE BEDTIME
     Route: 061
     Dates: start: 2017, end: 201710
  4. METRONIDAZOLE GEL USP, 1% [Suspect]
     Active Substance: METRONIDAZOLE
     Dosage: UNK, 1X/DAY BEFORE BEDTIME
     Route: 061
     Dates: start: 2017, end: 2017

REACTIONS (5)
  - Application site irritation [Recovering/Resolving]
  - Application site pain [Recovering/Resolving]
  - Product quality issue [Recovered/Resolved]
  - Malabsorption from application site [Recovering/Resolving]
  - Sensory disturbance [Recovering/Resolving]

NARRATIVE: CASE EVENT DATE: 2017
